FAERS Safety Report 7100057-3 (Version None)
Quarter: 2010Q4

REPORT INFORMATION
  Report Type: 
  Country: None (occurrence: None)
  Receive Date: 20101112
  Receipt Date: 20101101
  Transmission Date: 20110411
  Serious: Yes (Other)
  Sender: FDA-Public Use
  Company Number: US-ELI_LILLY_AND_COMPANY-US201011000420

PATIENT
  Sex: Male

DRUGS (2)
  1. CIALIS [Suspect]
     Indication: ERECTILE DYSFUNCTION
     Dosage: 20 MG, WEEKLY (1/W)
  2. ADVIL LIQUI-GELS [Concomitant]

REACTIONS (3)
  - DIVERTICULITIS [None]
  - GASTROINTESTINAL HAEMORRHAGE [None]
  - ULCER [None]
